FAERS Safety Report 18548454 (Version 1)
Quarter: 2020Q4

REPORT INFORMATION
  Report Type: Spontaneous
  Country: US (occurrence: US)
  Receive Date: 20201125
  Receipt Date: 20201125
  Transmission Date: 20210114
  Serious: Yes (Hospitalization)
  Sender: FDA-Public Use
  Company Number: US-FRESENIUS MEDICAL CARE RENAL THERAPIES GROUP-FMC-2011-001433

PATIENT
  Age: 51 Year
  Sex: Male
  Weight: 91 kg

DRUGS (16)
  1. DELFLEX WITH DEXTROSE 4.25% LOW MAGNESIUM LOW CALCIUM [Suspect]
     Active Substance: CALCIUM CHLORIDE\DEXTROSE\MAGNESIUM CHLORIDE\SODIUM CHLORIDE\SODIUM LACTATE
     Indication: END STAGE RENAL DISEASE
     Dosage: FILL VOLUME 2200 ML, 4 EXCHANGES, LAST FILL 2000 ML, NO DAYTIME EXCHANGE, DWELL TIME 1.5 HOURS, SINC
     Route: 033
  2. AURYXIA [Concomitant]
     Active Substance: TETRAFERRIC TRICITRATE DECAHYDRATE
  3. CALCIUM ACETATE. [Concomitant]
     Active Substance: CALCIUM ACETATE
  4. DELFLEX WITH DEXTROSE 2.5% LOW MAGNESIUM LOW CALCIUM [Suspect]
     Active Substance: CALCIUM CHLORIDE\DEXTROSE\MAGNESIUM CHLORIDE\SODIUM CHLORIDE\SODIUM LACTATE
     Indication: END STAGE RENAL DISEASE
     Dosage: FILL VOLUME 2200 ML, 4 EXCHANGES, LAST FILL 2000 ML, NO DAYTIME EXCHANGE, DWELL TIME 1.5 HOURS, SINC
     Route: 033
  5. ERGOCALCIFEROL. [Concomitant]
     Active Substance: ERGOCALCIFEROL
  6. HUMULIN NOS [Concomitant]
     Active Substance: INSULIN HUMAN
  7. DELFLEX WITH DEXTROSE 1.5% LOW MAGNESIUM LOW CALCIUM [Suspect]
     Active Substance: CALCIUM CHLORIDE\DEXTROSE\MAGNESIUM CHLORIDE\SODIUM CHLORIDE\SODIUM LACTATE
     Indication: END STAGE RENAL DISEASE
     Dosage: FILL VOLUME 2200 ML, 4 EXCHANGES, LAST FILL 2000 ML, NO DAYTIME EXCHANGE, DWELL TIME 1.5 HOURS, SINC
     Route: 033
     Dates: start: 20190930
  8. MELATONIN [Concomitant]
     Active Substance: MELATONIN
  9. NIFEDIPINE. [Concomitant]
     Active Substance: NIFEDIPINE
  10. VITAMIN C [Concomitant]
     Active Substance: ASCORBIC ACID
  11. ASPIRIN. [Concomitant]
     Active Substance: ASPIRIN
  12. ATORVASTATIN [Concomitant]
     Active Substance: ATORVASTATIN
  13. CARVEDILOL. [Concomitant]
     Active Substance: CARVEDILOL
  14. COENZYME Q10 [Concomitant]
     Active Substance: DIETARY SUPPLEMENT\UBIDECARENONE
  15. CALCITRIOL. [Concomitant]
     Active Substance: CALCITRIOL
  16. ZOLOFT [Concomitant]
     Active Substance: SERTRALINE HYDROCHLORIDE

REACTIONS (3)
  - Confusional state [Recovered/Resolved]
  - Mental status changes [Recovered/Resolved]
  - Failure to thrive [Recovered/Resolved]
